FAERS Safety Report 12611266 (Version 1)
Quarter: 2016Q3

REPORT INFORMATION
  Report Type: Spontaneous
  Country: DK (occurrence: CN)
  Receive Date: 20160801
  Receipt Date: 20160801
  Transmission Date: 20161109
  Serious: Yes (Hospitalization, Other)
  Sender: FDA-Public Use
  Company Number: CN-FRI-1000086531

PATIENT
  Age: 15 Year
  Sex: Female
  Weight: 35 kg

DRUGS (1)
  1. LEXAPRO [Suspect]
     Active Substance: ESCITALOPRAM OXALATE
     Indication: DEPRESSION
     Route: 048
     Dates: start: 20150324, end: 20150330

REACTIONS (3)
  - Drug administered to patient of inappropriate age [Recovered/Resolved]
  - Systemic lupus erythematosus [Unknown]
  - Tic [Recovered/Resolved]

NARRATIVE: CASE EVENT DATE: 20150324
